FAERS Safety Report 8092229-9 (Version None)
Quarter: 2012Q1

REPORT INFORMATION
  Report Type: 
  Country: None (occurrence: None)
  Receive Date: 20120129
  Receipt Date: 20111105
  Transmission Date: 20120608
  Serious: No
  Sender: FDA-Public Use
  Company Number: US-ABBOTT-11P-163-0871675-00

PATIENT
  Sex: Female
  Weight: 79.45 kg

DRUGS (5)
  1. HUMIRA [Suspect]
     Indication: PSORIATIC ARTHROPATHY
  2. PREDNISONE TAB [Concomitant]
     Indication: PSORIATIC ARTHROPATHY
     Dosage: WEANING OFF
  3. HUMIRA [Suspect]
  4. MELOXICAM [Concomitant]
     Indication: PSORIATIC ARTHROPATHY
  5. BIRTH CONTROL STICK [Concomitant]
     Indication: CONTRACEPTION
     Dosage: IN ARM

REACTIONS (6)
  - INJECTION SITE PAIN [None]
  - INCORRECT DOSE ADMINISTERED [None]
  - ARTHRALGIA [None]
  - INJECTION SITE HAEMORRHAGE [None]
  - DEVICE MALFUNCTION [None]
  - INJECTION SITE HAEMATOMA [None]
